FAERS Safety Report 7296902-1 (Version None)
Quarter: 2011Q1

REPORT INFORMATION
  Report Type: 
  Country: None (occurrence: None)
  Receive Date: 20110216
  Receipt Date: 20110207
  Transmission Date: 20110831
  Serious: Yes (Hospitalization)
  Sender: FDA-Public Use
  Company Number: SE-B.I. PHARMACEUTICALS,INC./RIDGEFIELD-2011-SW-00035SW

PATIENT
  Sex: Female
  Weight: 49 kg

DRUGS (2)
  1. PRADAXA [Suspect]
     Indication: THROMBOSIS PROPHYLAXIS
     Dosage: 150 MG
     Route: 048
     Dates: start: 20110113, end: 20110204
  2. PRADAXA [Suspect]
     Dosage: 150 MG
     Route: 048
     Dates: start: 20110205

REACTIONS (5)
  - ANAEMIA [None]
  - OEDEMA PERIPHERAL [None]
  - HAEMATOMA [None]
  - BLISTER [None]
  - PETIT MAL EPILEPSY [None]
